FAERS Safety Report 14879335 (Version 1)
Quarter: 2018Q2

REPORT INFORMATION
  Report Type: Report from Study
  Country: None (occurrence: US)
  Receive Date: 20180511
  Receipt Date: 20180511
  Transmission Date: 20180711
  Serious: Yes (Other)
  Sender: FDA-Public Use
  Company Number: US-ABBVIE-18K-163-2351198-00

PATIENT
  Age: 23 Year
  Sex: Female

DRUGS (4)
  1. HUMIRA [Suspect]
     Active Substance: ADALIMUMAB
     Dosage: ONE TIME ONLY
     Route: 058
     Dates: start: 20120115, end: 20120115
  2. HUMIRA [Suspect]
     Active Substance: ADALIMUMAB
     Route: 058
     Dates: start: 20160508
  3. HUMIRA [Suspect]
     Active Substance: ADALIMUMAB
     Indication: CROHN^S DISEASE
     Dosage: ONE TIME ONLY
     Route: 058
     Dates: start: 20120101, end: 20120101
  4. HUMIRA [Suspect]
     Active Substance: ADALIMUMAB
     Route: 058
     Dates: start: 20121229, end: 20160508

REACTIONS (1)
  - Small intestinal resection [Recovered/Resolved]

NARRATIVE: CASE EVENT DATE: 20160508
